FAERS Safety Report 9005347 (Version 1)
Quarter: 2013Q1

REPORT INFORMATION
  Report Type: Report from Study
  Country: DE (occurrence: DE)
  Receive Date: 20130108
  Receipt Date: 20130108
  Transmission Date: 20140127
  Serious: Yes (Hospitalization)
  Sender: FDA-Public Use
  Company Number: DE-ABBOTT-13P-062-1031235-00

PATIENT
  Age: 56 Year
  Sex: Female
  Weight: 45 kg

DRUGS (3)
  1. HUMIRA [Suspect]
     Indication: CROHN^S DISEASE
     Route: 050
     Dates: start: 20081125, end: 201206
  2. PREDNISOLONE [Concomitant]
     Indication: CROHN^S DISEASE
     Dosage: 60-10 MG DAILY
     Route: 048
     Dates: start: 1990
  3. BUDESONID [Concomitant]
     Indication: CROHN^S DISEASE

REACTIONS (1)
  - Subileus [Recovered/Resolved]
